FAERS Safety Report 25120994 (Version 1)
Quarter: 2025Q1

REPORT INFORMATION
  Report Type: Report from Study
  Country: US (occurrence: US)
  Receive Date: 20250326
  Receipt Date: 20250326
  Transmission Date: 20250409
  Serious: Yes (Other)
  Sender: ABBVIE
  Company Number: US-ABBVIE-5982686

PATIENT
  Age: 73 Year
  Sex: Female
  Weight: 60.78 kg

DRUGS (5)
  1. HUMIRA [Suspect]
     Active Substance: ADALIMUMAB
     Indication: Rheumatoid arthritis
     Dosage: FORM STRENGTH UNITS:40 MILLIGRAM,CITRATE FREE
     Route: 058
     Dates: start: 2012
  2. HUMIRA [Suspect]
     Active Substance: ADALIMUMAB
     Route: 058
     Dates: start: 20160714
  3. LEFLUNOMIDE [Concomitant]
     Active Substance: LEFLUNOMIDE
     Indication: Arthritis
  4. CEQUA [Concomitant]
     Active Substance: CYCLOSPORINE
     Indication: Dry eye
  5. PREDNISONE [Concomitant]
     Active Substance: PREDNISONE
     Indication: Rheumatoid arthritis
     Route: 065

REACTIONS (15)
  - Cataract [Recovered/Resolved]
  - Knee arthroplasty [Recovered/Resolved]
  - Limb deformity [Not Recovered/Not Resolved]
  - Fall [Recovering/Resolving]
  - Osteoarthritis [Recovered/Resolved]
  - Dry eye [Recovering/Resolving]
  - Knee arthroplasty [Recovered/Resolved]
  - Eye pruritus [Recovered/Resolved]
  - Knee arthroplasty [Recovered/Resolved]
  - Eye inflammation [Not Recovered/Not Resolved]
  - Nasopharyngitis [Recovered/Resolved]
  - Neck pain [Not Recovered/Not Resolved]
  - Back pain [Not Recovered/Not Resolved]
  - Eye infection [Recovered/Resolved]
  - Pain in extremity [Not Recovered/Not Resolved]

NARRATIVE: CASE EVENT DATE: 20130101
